FAERS Safety Report 17094115 (Version 4)
Quarter: 2021Q1

REPORT INFORMATION
  Report Type: Report from Study
  Country: US (occurrence: US)
  Receive Date: 20191129
  Receipt Date: 20210227
  Transmission Date: 20210419
  Serious: Yes (Other)
  Sender: FDA-Public Use
  Company Number: US-TEVA-2019-US-1144228

PATIENT
  Age: 48 Year
  Sex: Female

DRUGS (13)
  1. CLARITHROMYCIN. [Concomitant]
     Active Substance: CLARITHROMYCIN
  2. VALIUM [Concomitant]
     Active Substance: DIAZEPAM
  3. TOPIRAMATE. [Concomitant]
     Active Substance: TOPIRAMATE
  4. GABAPENTIN. [Concomitant]
     Active Substance: GABAPENTIN
  5. METHYLPREDNISOLON [Concomitant]
     Active Substance: METHYLPREDNISOLONE
  6. CEFDINIR. [Concomitant]
     Active Substance: CEFDINIR
  7. LEXAPRO [Concomitant]
     Active Substance: ESCITALOPRAM OXALATE
  8. AIMOVIG [Concomitant]
     Active Substance: ERENUMAB-AOOE
  9. POTASSIUM [Concomitant]
     Active Substance: POTASSIUM
  10. COPAXONE [Suspect]
     Active Substance: GLATIRAMER ACETATE
     Indication: MULTIPLE SCLEROSIS
     Dosage: COPAXONE 40 MG 3 TIME PER WEEK
     Route: 058
     Dates: start: 20180118
  11. TOPIRAMATE. [Concomitant]
     Active Substance: TOPIRAMATE
  12. AMANTADINE. [Concomitant]
     Active Substance: AMANTADINE HYDROCHLORIDE
  13. AMITRIPTYLINE [Concomitant]
     Active Substance: AMITRIPTYLINE

REACTIONS (10)
  - Gait disturbance [Not Recovered/Not Resolved]
  - Memory impairment [Unknown]
  - Impaired quality of life [Not Recovered/Not Resolved]
  - Multiple sclerosis relapse [Not Recovered/Not Resolved]
  - Cognitive disorder [Not Recovered/Not Resolved]
  - Mobility decreased [Not Recovered/Not Resolved]
  - Pulmonary thrombosis [Not Recovered/Not Resolved]
  - Thrombosis [Not Recovered/Not Resolved]
  - Fall [Not Recovered/Not Resolved]
  - Fatigue [Not Recovered/Not Resolved]

NARRATIVE: CASE EVENT DATE: 202101
